FAERS Safety Report 8354309-X (Version None)
Quarter: 2012Q2

REPORT INFORMATION
  Report Type: 
  Country: None (occurrence: None)
  Receive Date: 20120511
  Receipt Date: 20120504
  Transmission Date: 20120825
  Serious: Yes (Hospitalization)
  Sender: FDA-Public Use
  Company Number: US-AMGEN-USASP2012028742

PATIENT
  Age: 57 Year
  Sex: Male

DRUGS (3)
  1. ENBREL [Suspect]
     Indication: RHEUMATOID ARTHRITIS
     Dosage: 25 MG, 2 TIMES/WK
     Dates: start: 20030501, end: 20040601
  2. AZULFIDINE [Concomitant]
     Dosage: 3 MG, UNK
     Dates: start: 20050101
  3. ARAVA [Concomitant]
     Dosage: 1 MG, UNK
     Dates: start: 20090101

REACTIONS (6)
  - STAPHYLOCOCCAL INFECTION [None]
  - ALLERGY TO CHEMICALS [None]
  - JOINT DESTRUCTION [None]
  - CHONDROPATHY [None]
  - JOINT ARTHROPLASTY [None]
  - PAIN IN EXTREMITY [None]
